FAERS Safety Report 6212017-5 (Version None)
Quarter: 2009Q2

REPORT INFORMATION
  Report Type: 
  Country: None (occurrence: None)
  Receive Date: 20090602
  Receipt Date: 20090520
  Transmission Date: 20091009
  Serious: Yes (Hospitalization, Other)
  Sender: FDA-Public Use
  Company Number: US-PFIZER INC-2009216750

PATIENT
  Sex: Male
  Weight: 95.254 kg

DRUGS (15)
  1. REVATIO [Suspect]
     Indication: PULMONARY HYPERTENSION
     Dosage: 20 MG, 3X/DAY
     Dates: start: 20090301
  2. GEMFIBROZIL [Concomitant]
     Dosage: UNK
  3. METFORMIN [Concomitant]
     Dosage: UNK
  4. DOXAZOSIN [Concomitant]
     Dosage: UNK
  5. NIACIN [Concomitant]
     Dosage: UNK
  6. ZOCOR [Concomitant]
     Dosage: UNK
  7. OMEPRAZOLE [Concomitant]
     Dosage: UNK
  8. METOPROLOL [Concomitant]
     Dosage: UNK
  9. GLIPIZIDE [Concomitant]
     Dosage: UNK
  10. LASIX [Concomitant]
     Dosage: UNK
  11. LOSARTAN POTASSIUM [Concomitant]
     Dosage: UNK
  12. PLAVIX [Concomitant]
     Dosage: UNK
  13. FOSAMAX [Concomitant]
     Dosage: UNK
  14. LANTUS [Concomitant]
     Dosage: UNK
  15. ACETYLSALICYLIC ACID [Concomitant]

REACTIONS (3)
  - BLOOD GLUCOSE INCREASED [None]
  - CARDIAC DISORDER [None]
  - CHEST PAIN [None]
